FAERS Safety Report 6568210-5 (Version None)
Quarter: 2010Q1

REPORT INFORMATION
  Report Type: 
  Country: None (occurrence: None)
  Receive Date: 20100203
  Receipt Date: 20100120
  Transmission Date: 20100710
  Serious: Yes (Hospitalization)
  Sender: FDA-Public Use
  Company Number: US-ROCHE-682715

PATIENT
  Sex: Female
  Weight: 75 kg

DRUGS (13)
  1. BEVACIZUMAB [Suspect]
     Dosage: FORM: 25MG/ML VIALS
     Route: 042
     Dates: start: 20080723, end: 20091224
  2. ERLOTINIB [Suspect]
     Dosage: 25 MG PILLS/BOTTLE
     Route: 048
     Dates: start: 20080723
  3. 4 LIFE TRANSFER FACTOR [Concomitant]
     Dosage: DRUG NAME: TRANSFER-4-LIFE.
     Route: 048
     Dates: start: 20070301
  4. THERA PLUS VITAMINS [Concomitant]
     Dosage: DRUG NAME; PLUS VITAMIN
     Route: 048
     Dates: start: 20070301
  5. LOVENOX [Concomitant]
     Route: 058
     Dates: start: 20080723
  6. MINOCYCLINE HCL [Concomitant]
     Dosage: DRUG NAME: MINICYCLINE
     Route: 050
     Dates: start: 20080902
  7. FENTANYL [Concomitant]
     Route: 062
     Dates: start: 20090206
  8. ZOFRAN [Concomitant]
     Route: 042
     Dates: start: 20090227
  9. PHENERGAN HCL [Concomitant]
     Route: 048
     Dates: start: 20090227
  10. LORTAB [Concomitant]
     Route: 048
     Dates: start: 20090320
  11. LISINOPRIL [Concomitant]
     Route: 048
     Dates: start: 20090807
  12. LEVAQUIN [Concomitant]
     Route: 048
     Dates: start: 20091230
  13. CIPRO [Concomitant]
     Route: 048
     Dates: start: 20091231

REACTIONS (6)
  - BRONCHITIS VIRAL [None]
  - FUNGAL SEPSIS [None]
  - GASTROOESOPHAGEAL REFLUX DISEASE [None]
  - PERICARDIAL EFFUSION [None]
  - PULMONARY HYPERTENSION [None]
  - RASH [None]
